FAERS Safety Report 6698774-2 (Version None)
Quarter: 2010Q2

REPORT INFORMATION
  Report Type: 
  Country: None (occurrence: None)
  Receive Date: 20100427
  Receipt Date: 20100416
  Transmission Date: 20101027
  Serious: Yes (Hospitalization)
  Sender: FDA-Public Use
  Company Number: PHHY2010ZA24281

PATIENT
  Sex: Female

DRUGS (1)
  1. ACLASTA [Suspect]
     Dosage: 5 MG, UNK
     Route: 042
     Dates: start: 20100415

REACTIONS (4)
  - EYE OEDEMA [None]
  - FACE OEDEMA [None]
  - PHARYNGEAL OEDEMA [None]
  - SKIN REACTION [None]
